FAERS Safety Report 13533405 (Version 1)
Quarter: 2017Q2

REPORT INFORMATION
  Report Type: Spontaneous
  Country: US (occurrence: US)
  Receive Date: 20170510
  Receipt Date: 20170510
  Transmission Date: 20170830
  Serious: No
  Sender: FDA-Public Use
  Company Number: US-FRESENIUS KABI-FK201703663

PATIENT
  Age: 12 Day
  Sex: Male

DRUGS (1)
  1. XYLOCAINE-MPF [Suspect]
     Active Substance: LIDOCAINE HYDROCHLORIDE
     Indication: LOCAL ANAESTHESIA
     Route: 065
     Dates: start: 20170420, end: 20170420

REACTIONS (1)
  - Tissue discolouration [Recovered/Resolved]

NARRATIVE: CASE EVENT DATE: 20170421
